FAERS Safety Report 5737988-2 (Version None)
Quarter: 2008Q2

REPORT INFORMATION
  Report Type: 
  Country: None (occurrence: None)
  Receive Date: 20080514
  Receipt Date: 20080512
  Transmission Date: 20081010
  Serious: Yes (Hospitalization)
  Sender: FDA-Public Use
  Company Number: US-SANOFI-SYNTHELABO-F01200800751

PATIENT
  Sex: Female

DRUGS (11)
  1. MEGACE [Concomitant]
     Dosage: UNK
  2. CELEXA [Concomitant]
     Dosage: UNK
  3. COLACE [Concomitant]
     Dosage: UNK
  4. COMPAZINE [Concomitant]
     Dosage: UNK
  5. TEMAZEPAM [Concomitant]
     Dosage: UNK
  6. OXYCONTIN [Concomitant]
     Dosage: UNK
  7. DEXTROPROPOXYPHENE/PARACETAMOL [Concomitant]
     Dosage: UNK
  8. ACTONEL [Concomitant]
     Dosage: UNK
  9. XELODA [Suspect]
     Route: 065
     Dates: start: 20080407, end: 20080407
  10. OXALIPLATIN [Suspect]
     Indication: NEUROENDOCRINE CARCINOMA
     Route: 042
     Dates: start: 20080407, end: 20080407
  11. BEVACIZUMAB [Suspect]
     Route: 042
     Dates: start: 20080407, end: 20080407

REACTIONS (2)
  - ASTHENIA [None]
  - HYPOVOLAEMIA [None]
